FAERS Safety Report 18769956 (Version 1)
Quarter: 2021Q1

REPORT INFORMATION
  Report Type: Spontaneous
  Country: MA (occurrence: MA)
  Receive Date: 20210122
  Receipt Date: 20210122
  Transmission Date: 20210419
  Serious: No
  Sender: FDA-Public Use
  Company Number: MA-LUPIN PHARMACEUTICALS INC.-2021-00434

PATIENT
  Age: 7 Year
  Sex: Male

DRUGS (2)
  1. VORICONAZOLE. [Suspect]
     Active Substance: VORICONAZOLE
     Indication: HYPOPYON
     Dosage: UNK, INTRASTROMAL INJECTION
  2. VORICONAZOLE. [Suspect]
     Active Substance: VORICONAZOLE
     Indication: MYCOTIC ENDOPHTHALMITIS
     Dosage: 50 MICROGRAM PER 0.1ML

REACTIONS (2)
  - Product use issue [Unknown]
  - No adverse event [Unknown]
